FAERS Safety Report 5883815-2 (Version None)
Quarter: 2008Q3

REPORT INFORMATION
  Report Type: 
  Country: None (occurrence: None)
  Receive Date: 20080915
  Receipt Date: 20050414
  Transmission Date: 20090109
  Serious: Yes (Hospitalization)
  Sender: FDA-Public Use
  Company Number: SE-ROCHE-585509

PATIENT
  Sex: Male

DRUGS (12)
  1. CELLCEPT [Suspect]
     Indication: IMMUNOSUPPRESSION
     Dosage: DOSAGE REGIMEN : DAILY
     Route: 048
     Dates: start: 20050503
  2. PREDNISOLONE [Concomitant]
     Indication: IMMUNOSUPPRESSION
     Dosage: DOASGE AND REGIMEN: DAILY
     Route: 048
     Dates: start: 19960604
  3. ISRADIPIN [Concomitant]
     Indication: HYPERTENSION
     Dosage: DOSAGE REGIMEN: DAILY
     Route: 048
     Dates: start: 19940805
  4. ENALAPRIL MALEATE [Concomitant]
     Indication: HYPERTENSION
     Dosage: DOSAGE REGIMEN: DAILY
     Route: 048
     Dates: start: 19941011
  5. CYCLOSPORINE [Concomitant]
     Indication: IMMUNOSUPPRESSION
     Dosage: DOSAGE REGIMEN: TWICE/ DAILY
     Route: 048
     Dates: start: 20040319, end: 20070130
  6. DARBEPOETIN ALFA [Concomitant]
     Route: 058
     Dates: start: 20000318, end: 20050517
  7. DARBEPOETIN ALFA [Concomitant]
     Route: 058
     Dates: start: 20050518, end: 20050617
  8. DARBEPOETIN ALFA [Concomitant]
     Dosage: FREQUENCY : 10 TH DAY
     Route: 058
     Dates: start: 20050617
  9. ORAL IRON [Concomitant]
     Dates: start: 20000422
  10. DALTEPARINUM NATRICUM [Concomitant]
     Dosage: TTD: 5000 IE DAILY
     Route: 058
     Dates: start: 20050401, end: 20050418
  11. ACETAMINOPHEN [Concomitant]
     Dosage: PAARCETAMOL 500 MG 1-2X 3-4
  12. DEXOFEN [Concomitant]
     Dosage: FREQUENCY : 1 X4

REACTIONS (1)
  - FEMUR FRACTURE [None]
